FAERS Safety Report 7271730-1 (Version None)
Quarter: 2011Q1

REPORT INFORMATION
  Report Type: 
  Country: None (occurrence: None)
  Receive Date: 20110203
  Receipt Date: 20110131
  Transmission Date: 20110831
  Serious: Yes (Death, Hospitalization)
  Sender: FDA-Public Use
  Company Number: FR-JNJFOC-20110103528

PATIENT
  Sex: Male

DRUGS (6)
  1. PARKINANE [Concomitant]
     Indication: PRODUCT USED FOR UNKNOWN INDICATION
     Route: 048
     Dates: start: 20100811, end: 20101230
  2. DEPAKOTE [Suspect]
     Indication: AFFECTIVE DISORDER
     Route: 048
     Dates: start: 20100811, end: 20101230
  3. LOXAPAC [Suspect]
     Indication: PSYCHOTIC DISORDER
     Route: 048
     Dates: start: 20100811, end: 20101230
  4. ALPRAZOLAM [Concomitant]
     Indication: PRODUCT USED FOR UNKNOWN INDICATION
     Route: 048
     Dates: start: 20100811, end: 20101230
  5. RISPERDAL CONSTA [Suspect]
     Indication: SCHIZOPHRENIA
     Route: 030
     Dates: start: 20100930, end: 20101230
  6. RISPERDAL CONSTA [Suspect]
     Indication: PSYCHOTIC DISORDER
     Route: 030
     Dates: start: 20100930, end: 20101230

REACTIONS (2)
  - ISCHAEMIC CEREBRAL INFARCTION [None]
  - COMA [None]
